FAERS Safety Report 4808609-8 (Version None)
Quarter: 2005Q4

REPORT INFORMATION
  Report Type: 
  Country: None (occurrence: None)
  Receive Date: 20051021
  Receipt Date: 20051021
  Transmission Date: 20060501
  Serious: Yes (Hospitalization)
  Sender: FDA-Public Use
  Company Number: None

PATIENT
  Age: 80 Year
  Sex: Male
  Weight: 101.1521 kg

DRUGS (2)
  1. WARFARIN 4MG [Suspect]
     Indication: ATRIAL FIBRILLATION
     Dosage: 4MG/8MG 4MG ON M,W,F 8
     Dates: start: 20000601, end: 20051020
  2. WARFARIN 4MG [Suspect]
     Indication: ATRIAL FLUTTER
     Dosage: 4MG/8MG 4MG ON M,W,F 8
     Dates: start: 20000601, end: 20051020

REACTIONS (1)
  - DRUG TOXICITY [None]
